FAERS Safety Report 24442309 (Version 2)
Quarter: 2024Q4

REPORT INFORMATION
  Report Type: Spontaneous
  Country: FR (occurrence: FR)
  Receive Date: 20241016
  Receipt Date: 20241017
  Transmission Date: 20250115
  Serious: No
  Sender: ROCHE
  Company Number: FR-ROCHE-3533487

PATIENT
  Age: 42 Year
  Sex: Male
  Weight: 65.0 kg

DRUGS (1)
  1. HEMLIBRA [Suspect]
     Active Substance: EMICIZUMAB-KXWH
     Indication: Factor VIII deficiency
     Dosage: DOSE: 210 MG/14 DAYS
     Route: 058
     Dates: start: 20211115

REACTIONS (3)
  - Injection site pain [Recovered/Resolved with Sequelae]
  - Swelling [Recovered/Resolved with Sequelae]
  - Erythema [Recovered/Resolved with Sequelae]
